FAERS Safety Report 11111110 (Version 1)
Quarter: 2015Q2

REPORT INFORMATION
  Report Type: Spontaneous
  Country: US (occurrence: US)
  Receive Date: 20150513
  Receipt Date: 20150513
  Transmission Date: 20150821
  Serious: Yes (Other)
  Sender: FDA-Public Use
  Company Number: US-ELI_LILLY_AND_COMPANY-US201505000909

PATIENT
  Age: 78 Year
  Sex: Female

DRUGS (8)
  1. INSULIN HUMAN [Suspect]
     Active Substance: INSULIN HUMAN
     Dosage: 26 U, AT LUNCH
     Route: 065
  2. LISINOPRIL. [Concomitant]
     Active Substance: LISINOPRIL
  3. METFORMIN [Concomitant]
     Active Substance: METFORMIN HYDROCHLORIDE
  4. HYDROCODEINE [Concomitant]
     Active Substance: DIHYDROCODEINE PHOSPHATE
  5. SIMVASTATIN. [Concomitant]
     Active Substance: SIMVASTATIN
  6. INSULIN HUMAN [Suspect]
     Active Substance: INSULIN HUMAN
     Indication: TYPE 2 DIABETES MELLITUS
     Dosage: 27 U, EACH MORNING
     Route: 065
  7. INSULIN HUMAN [Suspect]
     Active Substance: INSULIN HUMAN
     Dosage: 32 U, EACH EVENING
     Route: 065
  8. BABY ASPIRIN [Concomitant]
     Active Substance: ASPIRIN

REACTIONS (3)
  - Blood glucose increased [Unknown]
  - Drug ineffective [Unknown]
  - Hernia [Recovered/Resolved]

NARRATIVE: CASE EVENT DATE: 20150424
